FAERS Safety Report 12847555 (Version 1)
Quarter: 2016Q4

REPORT INFORMATION
  Report Type: Spontaneous
  Country: NL (occurrence: NL)
  Receive Date: 20161014
  Receipt Date: 20161014
  Transmission Date: 20170207
  Serious: Yes (Other)
  Sender: FDA-Public Use
  Company Number: NL-ASTRAZENECA-2016SF06745

PATIENT
  Age: 636 Month
  Sex: Female
  Weight: 69 kg

DRUGS (4)
  1. TOLBUTAMIDE. [Concomitant]
     Active Substance: TOLBUTAMIDE
     Route: 048
     Dates: start: 20130321
  2. CRESTOR [Suspect]
     Active Substance: ROSUVASTATIN CALCIUM
     Indication: HYPERCHOLESTEROLAEMIA
     Route: 048
     Dates: start: 20160908, end: 20160919
  3. METFORMINE [Concomitant]
     Active Substance: METFORMIN HYDROCHLORIDE
     Dosage: 2 DD 1
     Route: 048
     Dates: start: 20080901
  4. ETHINYLESTRADIOL/LEVONORGESTREL [Concomitant]
     Active Substance: ETHINYL ESTRADIOL\LEVONORGESTREL
     Dosage: 1.0DF UNKNOWN
     Route: 048
     Dates: start: 20130211

REACTIONS (2)
  - Depressed mood [Recovering/Resolving]
  - Suicidal ideation [Recovering/Resolving]

NARRATIVE: CASE EVENT DATE: 201609
